FAERS Safety Report 18242165 (Version 1)
Quarter: 2020Q3

REPORT INFORMATION
  Report Type: Other
  Country: TW (occurrence: TW)
  Receive Date: 20200908
  Receipt Date: 20200908
  Transmission Date: 20201103
  Serious: Yes (Hospitalization)
  Sender: FDA-Public Use
  Company Number: TW-B.BRAUN MEDICAL INC.-2089483

PATIENT
  Age: 27 Year
  Sex: Female

DRUGS (3)
  1. SODIUM CHLORIDE INJECTION USP 0264?7800?09 [Suspect]
     Active Substance: SODIUM CHLORIDE
     Route: 042
  2. POTASSIUM [Concomitant]
     Active Substance: POTASSIUM
     Route: 042
  3. GLUCOSE [Concomitant]
     Active Substance: DEXTROSE
     Route: 042

REACTIONS (5)
  - Dyspnoea [Recovered/Resolved]
  - Pleural effusion [Recovered/Resolved]
  - Fluid overload [Recovered/Resolved]
  - Cardiomegaly [Recovered/Resolved]
  - Cardiac failure [Recovered/Resolved]
